FAERS Safety Report 11389129 (Version 1)
Quarter: 2015Q3

REPORT INFORMATION
  Report Type: Report from Study
  Country: US (occurrence: US)
  Receive Date: 20150817
  Receipt Date: 20150817
  Transmission Date: 20151125
  Serious: No
  Sender: FDA-Public Use
  Company Number: US-AMGEN-USASP2015081180

PATIENT
  Age: 55 Year
  Sex: Female

DRUGS (1)
  1. ENBREL [Suspect]
     Active Substance: ETANERCEPT
     Indication: RHEUMATOID ARTHRITIS
     Dosage: 50 MG, QWK
     Route: 065

REACTIONS (11)
  - Nasal congestion [Unknown]
  - Muscular weakness [Unknown]
  - Fear of disease [Unknown]
  - Condition aggravated [Unknown]
  - Oropharyngeal pain [Unknown]
  - Nasal discharge discolouration [Unknown]
  - Paraesthesia [Unknown]
  - Pain in extremity [Unknown]
  - Sleep disorder [Unknown]
  - Headache [Unknown]
  - Rhinorrhoea [Unknown]
